FAERS Safety Report 19135762 (Version 9)
Quarter: 2022Q4

REPORT INFORMATION
  Report Type: Report from Study
  Country: IT (occurrence: IT)
  Receive Date: 20210414
  Receipt Date: 20221229
  Transmission Date: 20230113
  Serious: Yes (Hospitalization)
  Sender: FDA-Public Use
  Company Number: IT-AMGEN INC.-ITACT2021055588

PATIENT
  Age: 74 Year
  Sex: Female
  Weight: 56.5 kg

DRUGS (12)
  1. ERENUMAB [Suspect]
     Active Substance: ERENUMAB
     Indication: Migraine without aura
     Dosage: 1 MILLILITER
     Route: 058
     Dates: start: 20210308
  2. IRINOTECAN [Suspect]
     Active Substance: IRINOTECAN
     Indication: Product used for unknown indication
     Dosage: 180 MILLIGRAM/SQ. METER
     Route: 042
     Dates: start: 20210310, end: 20210310
  3. FLUOROURACIL [Suspect]
     Active Substance: FLUOROURACIL
     Indication: Product used for unknown indication
     Dosage: 400 TO 2400 MILLIGRAM/SQ. METER
     Route: 042
     Dates: start: 20210310, end: 20210310
  4. RIZATRIPTAN [Concomitant]
     Active Substance: RIZATRIPTAN
     Dosage: 10 MILLIGRAM
     Route: 048
     Dates: start: 20100101
  5. HUMALOG [Concomitant]
     Active Substance: INSULIN LISPRO
     Dosage: 14 INTERNATIONAL UNIT
     Route: 058
     Dates: start: 20210111
  6. MEDROL [Concomitant]
     Active Substance: METHYLPREDNISOLONE
     Dosage: 8 MILLIGRAM
     Route: 048
     Dates: start: 20210111
  7. CAFFEINE;INDOMETACIN;PROCHLORPERAZINE [Concomitant]
     Dosage: 1 UNK
     Route: 054
     Dates: start: 20000101
  8. AMLODIPINE [Concomitant]
     Active Substance: AMLODIPINE BESYLATE
     Dosage: 10 MILLIGRAM
     Route: 048
     Dates: start: 20040101
  9. ZOLPIDEM [Concomitant]
     Active Substance: ZOLPIDEM TARTRATE
     Dosage: 10 MILLIGRAM
     Route: 048
     Dates: start: 20180101
  10. DIAZEPAM [Concomitant]
     Active Substance: DIAZEPAM
     Dosage: 15 GTT DROPS
     Route: 048
     Dates: start: 20190101
  11. DEXAMETHASONE [Concomitant]
     Active Substance: DEXAMETHASONE
     Dosage: 8 MILLIGRAM
     Route: 048
     Dates: start: 20210311, end: 20210313
  12. MORPHINE [Concomitant]
     Active Substance: MORPHINE
     Dosage: 10 GTT DROPS
     Route: 048
     Dates: start: 202102

REACTIONS (1)
  - Transient ischaemic attack [Recovered/Resolved]

NARRATIVE: CASE EVENT DATE: 20210323
